FAERS Safety Report 24258640 (Version 2)
Quarter: 2024Q3

REPORT INFORMATION
  Report Type: Spontaneous
  Country: TR (occurrence: TR)
  Receive Date: 20240828
  Receipt Date: 20240903
  Transmission Date: 20241016
  Serious: Yes (Hospitalization, Other)
  Sender: PFIZER
  Company Number: TR-MLMSERVICE-20240815-PI164201-00270-1

PATIENT
  Age: 16 Year
  Sex: Male

DRUGS (2)
  1. METHYLPREDNISOLONE ACETATE [Suspect]
     Active Substance: METHYLPREDNISOLONE ACETATE
     Indication: Multiple sclerosis
     Dosage: UNK
  2. METHYLPREDNISOLONE ACETATE [Suspect]
     Active Substance: METHYLPREDNISOLONE ACETATE
     Dosage: PULSE METHYLPREDNISOLONE (SECOND ATTACK)

REACTIONS (3)
  - Brain abscess [Recovering/Resolving]
  - Meningitis staphylococcal [Recovering/Resolving]
  - Off label use [Unknown]
